FAERS Safety Report 11505707 (Version 1)
Quarter: 2015Q3

REPORT INFORMATION
  Report Type: Spontaneous
  Country: US (occurrence: US)
  Receive Date: 20150915
  Receipt Date: 20150915
  Transmission Date: 20151125
  Serious: No
  Sender: FDA-Public Use
  Company Number: US-ROCHE-783229

PATIENT
  Sex: Male
  Weight: 81.6 kg

DRUGS (2)
  1. COPEGUS [Suspect]
     Active Substance: RIBAVIRIN
     Indication: HEPATITIS C
     Route: 048
  2. PEGASYS [Suspect]
     Active Substance: PEGINTERFERON ALFA-2A
     Indication: HEPATITIS C
     Route: 058

REACTIONS (6)
  - White blood cell count decreased [Unknown]
  - Weight decreased [Unknown]
  - Anaemia [Unknown]
  - Dry skin [Unknown]
  - Injection site reaction [Unknown]
  - Insomnia [Unknown]
